FAERS Safety Report 8695933 (Version 2)
Quarter: 2012Q4

REPORT INFORMATION
  Report Type: 
  Country: ES (occurrence: ES)
  Receive Date: 20120801
  Receipt Date: 20120917
  Transmission Date: 20130627
  Serious: Yes (Other)
  Sender: FDA-Public Use
  Company Number: ES-GE HEALTHCARE MEDICAL DIAGNOSTICS-VISP-NO-1207S-0319

PATIENT
  Age: 30 Year
  Sex: Female

DRUGS (1)
  1. VISIPAQUE [Suspect]
     Indication: PRODUCT USED FOR UNKNOWN INDICATION
     Dosage: dose not reported
     Route: 065
     Dates: start: 201207, end: 201207

REACTIONS (6)
  - Laryngeal oedema [Unknown]
  - Eyelid oedema [Unknown]
  - Papule [Unknown]
  - Pruritus [Unknown]
  - Cough [Unknown]
  - Dyspnoea [Unknown]
